FAERS Safety Report 26211131 (Version 1)
Quarter: 2025Q4

REPORT INFORMATION
  Report Type: Spontaneous
  Country: US (occurrence: US)
  Receive Date: 20251230
  Receipt Date: 20251230
  Transmission Date: 20260118
  Serious: Yes (Other)
  Sender: Thea Pharma
  Company Number: US-THEA-2025003268

PATIENT
  Sex: Female

DRUGS (1)
  1. IVIZIA [Suspect]
     Active Substance: POVIDONE
     Indication: Product used for unknown indication
     Route: 047

REACTIONS (2)
  - Eye disorder [Not Recovered/Not Resolved]
  - Adverse event [Unknown]
